FAERS Safety Report 9357250 (Version 1)
Quarter: 2013Q2

REPORT INFORMATION
  Report Type: Report from Study
  Country: NZ (occurrence: NZ)
  Receive Date: 20130620
  Receipt Date: 20130620
  Transmission Date: 20140414
  Serious: Yes (Other)
  Sender: FDA-Public Use
  Company Number: NZ-BAYER-2013-072271

PATIENT
  Age: 36 Year
  Sex: Female

DRUGS (1)
  1. MIRENA [Suspect]
     Dosage: 20 MCG/24HR, CONT
     Route: 015
     Dates: start: 20130530, end: 20130606

REACTIONS (5)
  - Presyncope [None]
  - Nausea [None]
  - Dizziness [None]
  - Clumsiness [None]
  - Syncope [None]
